FAERS Safety Report 11730916 (Version 1)
Quarter: 2015Q4

REPORT INFORMATION
  Report Type: Spontaneous
  Country: US (occurrence: US)
  Receive Date: 20151110
  Receipt Date: 20151110
  Transmission Date: 20160304
  Serious: No
  Sender: FDA-Public Use
  Company Number: US-ELI_LILLY_AND_COMPANY-US201202005294

PATIENT
  Sex: Female

DRUGS (2)
  1. FORTEO [Suspect]
     Active Substance: TERIPARATIDE
     Indication: OSTEOPOROSIS
     Dosage: UNK
     Route: 065
  2. FORTEO [Suspect]
     Active Substance: TERIPARATIDE
     Dosage: UNK
     Route: 065

REACTIONS (8)
  - Malaise [Unknown]
  - Contusion [Unknown]
  - Injection site pain [Recovering/Resolving]
  - Nasopharyngitis [Unknown]
  - Haemorrhage [Unknown]
  - Laryngitis [Unknown]
  - Injection site erythema [Recovering/Resolving]
  - Injury associated with device [Unknown]
